FAERS Safety Report 7258289-X (Version None)
Quarter: 2011Q1

REPORT INFORMATION
  Report Type: 
  Country: None (occurrence: None)
  Receive Date: 20110129
  Receipt Date: 20100728
  Transmission Date: 20110831
  Serious: No
  Sender: FDA-Public Use
  Company Number: US-ABBOTT-10P-163-0660486-00

PATIENT
  Age: 18 Year
  Sex: Female

DRUGS (1)
  1. HUMIRA [Suspect]
     Indication: PSORIASIS
     Dates: start: 20100615

REACTIONS (5)
  - SKIN EXFOLIATION [None]
  - NAUSEA [None]
  - VOMITING [None]
  - ABDOMINAL DISCOMFORT [None]
  - PSORIASIS [None]
